FAERS Safety Report 4280122-9 (Version None)
Quarter: 2004Q1

REPORT INFORMATION
  Report Type: 
  Country: None (occurrence: None)
  Receive Date: 20040126
  Receipt Date: 20040115
  Transmission Date: 20041129
  Serious: Yes (Other)
  Sender: FDA-Public Use
  Company Number: BE-JNJFOC-20040101789

PATIENT
  Age: 74 Year
  Sex: Female
  Weight: 55 kg

DRUGS (1)
  1. REMINYL [Suspect]
     Indication: DEMENTIA ALZHEIMER'S TYPE
     Dosage: 4 MG, IN 1 DAY, ORAL
     Route: 048
     Dates: start: 20020801, end: 20020901

REACTIONS (2)
  - INCREASED UPPER AIRWAY SECRETION [None]
  - PRODUCTIVE COUGH [None]
